FAERS Safety Report 24190325 (Version 1)
Quarter: 2024Q3

REPORT INFORMATION
  Report Type: Spontaneous
  Country: US (occurrence: None)
  Receive Date: 20240807
  Receipt Date: 20240807
  Transmission Date: 20241017
  Serious: Yes (Hospitalization)
  Sender: Public
  Company Number: None

PATIENT
  Age: 52 Year
  Sex: Female
  Weight: 94.5 kg

DRUGS (1)
  1. SKYRIZI [Suspect]
     Active Substance: RISANKIZUMAB-RZAA
     Indication: Psoriasis
     Dosage: OTHER FREQUENCY : QUARTERLY;?
     Route: 058
     Dates: start: 20240621, end: 20240721

REACTIONS (2)
  - Nasopharyngitis [None]
  - Upper respiratory tract infection [None]

NARRATIVE: CASE EVENT DATE: 20240721
